FAERS Safety Report 8581879-9 (Version None)
Quarter: 2012Q3

REPORT INFORMATION
  Report Type: 
  Country: None (occurrence: None)
  Receive Date: 20120809
  Receipt Date: 20120801
  Transmission Date: 20120928
  Serious: Yes (Other)
  Sender: FDA-Public Use
  Company Number: US-JNJFOC-20120802731

PATIENT
  Sex: Female
  Weight: 54.43 kg

DRUGS (6)
  1. RISPERIDONE [Concomitant]
     Route: 048
  2. LISINOPRIL [Concomitant]
     Route: 048
  3. NORVASC [Concomitant]
     Route: 048
  4. RISPERIDONE [Concomitant]
     Indication: DEMENTIA
     Route: 048
  5. POTASSIUM [Concomitant]
     Route: 048
  6. GALANTAMINE HYDROBROMIDE [Suspect]
     Indication: MEMORY IMPAIRMENT
     Route: 048

REACTIONS (11)
  - FALL [None]
  - ABNORMAL LOSS OF WEIGHT [None]
  - HIP FRACTURE [None]
  - DROOLING [None]
  - SUICIDAL IDEATION [None]
  - APHASIA [None]
  - HALLUCINATION [None]
  - FEELING ABNORMAL [None]
  - EATING DISORDER [None]
  - SALIVARY HYPERSECRETION [None]
  - MOOD SWINGS [None]
